FAERS Safety Report 20489779 (Version 4)
Quarter: 2022Q3

REPORT INFORMATION
  Report Type: Spontaneous
  Country: JP (occurrence: JP)
  Receive Date: 20220218
  Receipt Date: 20220809
  Transmission Date: 20221026
  Serious: No
  Sender: FDA-Public Use
  Company Number: JP-GLAXOSMITHKLINE-JP2022JPN027010

PATIENT

DRUGS (9)
  1. SOTROVIMAB [Suspect]
     Active Substance: SOTROVIMAB
     Indication: COVID-19
     Dosage: 500 MG/DAY
     Route: 042
     Dates: start: 20220210, end: 20220210
  2. LEVOTHYROXINE SODIUM [Suspect]
     Active Substance: LEVOTHYROXINE SODIUM
     Indication: Autoimmune thyroiditis
     Dosage: 25 ?G/DAY AND 50 ?G/DAY ON ALTERNATE DAYS
     Route: 048
  3. CALONAL [Suspect]
     Active Substance: ACETAMINOPHEN
     Indication: Headache
     Dosage: 1200 MG/DAY
     Route: 048
     Dates: start: 20210903, end: 20210908
  4. MAGNESIUM OXIDE [Suspect]
     Active Substance: MAGNESIUM OXIDE
     Indication: Constipation
     Dosage: 1980 MG/DAY
     Route: 048
     Dates: start: 20211008, end: 20211021
  5. MAGNESIUM OXIDE [Suspect]
     Active Substance: MAGNESIUM OXIDE
     Dosage: 1980 MG/DAY
     Route: 048
     Dates: start: 20211029, end: 20211125
  6. MAGNESIUM OXIDE [Suspect]
     Active Substance: MAGNESIUM OXIDE
     Dosage: 1980 MG/DAY
     Route: 048
     Dates: start: 20211224, end: 20220120
  7. MAGNESIUM OXIDE [Suspect]
     Active Substance: MAGNESIUM OXIDE
     Dosage: 1980 MG/DAY
     Route: 048
     Dates: start: 20220210, end: 20220216
  8. PANTETHINE [Suspect]
     Active Substance: PANTETHINE
     Indication: Constipation
     Dosage: 200 MG/DAY
     Route: 048
     Dates: start: 20211210, end: 20211223
  9. RITODRINE [Suspect]
     Active Substance: RITODRINE
     Indication: Premature labour
     Dosage: 15 MG/DAY
     Route: 048
     Dates: start: 20211224, end: 20220120

REACTIONS (1)
  - Exposure during pregnancy [Unknown]
